FAERS Safety Report 25831820 (Version 1)
Quarter: 2025Q3

REPORT INFORMATION
  Report Type: Spontaneous
  Country: US (occurrence: US)
  Receive Date: 20250922
  Receipt Date: 20250922
  Transmission Date: 20251021
  Serious: No
  Sender: ABBVIE
  Company Number: US-ABBVIE-6463976

PATIENT
  Age: 67 Year
  Sex: Female

DRUGS (1)
  1. ESTRADIOL [Suspect]
     Active Substance: ESTRADIOL
     Indication: Vulvovaginal dryness
     Route: 065
     Dates: end: 202509

REACTIONS (4)
  - Pain [Not Recovered/Not Resolved]
  - Vulvovaginal dryness [Not Recovered/Not Resolved]
  - Hot flush [Unknown]
  - Feeling hot [Unknown]

NARRATIVE: CASE EVENT DATE: 20250911
